FAERS Safety Report 5769299-3 (Version None)
Quarter: 2008Q2

REPORT INFORMATION
  Report Type: 
  Country: None (occurrence: None)
  Receive Date: 20080612
  Receipt Date: 20080320
  Transmission Date: 20081010
  Serious: No
  Sender: FDA-Public Use
  Company Number: US-ABBOTT-08P-163-0443979-00

PATIENT
  Sex: Female
  Weight: 59.928 kg

DRUGS (6)
  1. HUMIRA [Suspect]
     Indication: RHEUMATOID ARTHRITIS
     Route: 058
     Dates: start: 20070901
  2. PIROXICAM [Concomitant]
     Indication: ANTIINFLAMMATORY THERAPY
     Route: 048
     Dates: start: 20071101
  3. CYCLOSPORINE [Concomitant]
     Indication: DRY EYE
     Route: 047
     Dates: start: 20060101
  4. IBANDRONATE SODIUM [Concomitant]
     Indication: OSTEOPOROSIS PROPHYLAXIS
     Route: 048
     Dates: start: 20050101
  5. LEVOTHYROXINE SODIUM [Concomitant]
     Indication: HYPOTHYROIDISM
     Route: 048
     Dates: start: 19900101
  6. LOTION FOR ROSACEA [Concomitant]
     Indication: ROSACEA
     Route: 061
     Dates: start: 20070101

REACTIONS (1)
  - VAGINAL DISCHARGE [None]
